FAERS Safety Report 21785472 (Version 2)
Quarter: 2023Q1

REPORT INFORMATION
  Report Type: Report from Study
  Country: IT (occurrence: IT)
  Receive Date: 20221227
  Receipt Date: 20230103
  Transmission Date: 20230417
  Serious: Yes (Other)
  Sender: FDA-Public Use
  Company Number: IT-Vifor Pharma-VIT-2022-08825

PATIENT
  Age: 67 Year
  Sex: Male
  Weight: 70.7 kg

DRUGS (8)
  1. DIFELIKEFALIN [Suspect]
     Active Substance: DIFELIKEFALIN
     Indication: Uraemic pruritus
     Dosage: UNK; ROUTE HEMODIALYSIS
     Dates: start: 20221206, end: 20221210
  2. FUROSEMIDE [Concomitant]
     Active Substance: FUROSEMIDE
     Dosage: 500 MG 1 TABLET
     Dates: start: 20220628, end: 20221209
  3. ALLOPURINOL [Concomitant]
     Active Substance: ALLOPURINOL
     Dosage: 100 MG 1 TABLET
     Dates: start: 20220628, end: 20221209
  4. RENVELA [Concomitant]
     Active Substance: SEVELAMER CARBONATE
     Dosage: 800 MG 3 TABLETS X 3
     Dates: start: 20220628, end: 20221209
  5. DOXAZOSIN MESYLATE [Concomitant]
     Active Substance: DOXAZOSIN MESYLATE
     Dosage: 4 MG 1 TABLET
     Dates: start: 20220628, end: 20221209
  6. NORVASC [Concomitant]
     Active Substance: AMLODIPINE BESYLATE
     Dosage: 20 MG 1 TABLET
     Dates: start: 20220628, end: 20221209
  7. CARDIOASAWIN [Concomitant]
     Dosage: 100 MG 1 TABLET
     Dates: start: 20220628, end: 20221209
  8. OMEPRAZOLE [Concomitant]
     Active Substance: OMEPRAZOLE
     Dosage: 20 MG 1 TABLET
     Dates: start: 20220628, end: 20221209

REACTIONS (4)
  - Syncope [Recovered/Resolved]
  - Loss of consciousness [Recovered/Resolved]
  - Vomiting [Recovered/Resolved]
  - Nausea [Recovered/Resolved]

NARRATIVE: CASE EVENT DATE: 20221210
